FAERS Safety Report 21551125 (Version 1)
Quarter: 2022Q4

REPORT INFORMATION
  Report Type: Spontaneous
  Country: US (occurrence: None)
  Receive Date: 20221102
  Receipt Date: 20221102
  Transmission Date: 20230113
  Serious: Yes (Other)
  Sender: FDA-Public Use
  Company Number: None

PATIENT
  Age: 76 Year
  Sex: Male
  Weight: 117.93 kg

DRUGS (6)
  1. OZEMPIC [Suspect]
     Active Substance: SEMAGLUTIDE
     Indication: Type 2 diabetes mellitus
     Dosage: FREQUENCY :WEEKLY;?
     Dates: start: 20220801, end: 20220901
  2. ASPIRIN [Concomitant]
     Active Substance: ASPIRIN
  3. CARDIZEM [Concomitant]
     Active Substance: DILTIAZEM HYDROCHLORIDE
  4. FINESTERINE [Concomitant]
  5. FOROSIMIDE [Concomitant]
  6. VICKS VAPRO RUB [Concomitant]

REACTIONS (12)
  - Feeling abnormal [None]
  - Abdominal discomfort [None]
  - Dizziness [None]
  - Pain [None]
  - Disturbance in attention [None]
  - Headache [None]
  - Neck pain [None]
  - Pyrexia [None]
  - Chills [None]
  - Asthenia [None]
  - Somnolence [None]
  - Arthralgia [None]

NARRATIVE: CASE EVENT DATE: 20220309
